FAERS Safety Report 9643064 (Version 2)
Quarter: 2013Q4

REPORT INFORMATION
  Report Type: Spontaneous
  Country: DE (occurrence: DE)
  Receive Date: 20131024
  Receipt Date: 20131024
  Transmission Date: 20140711
  Serious: Yes (Other)
  Sender: FDA-Public Use
  Company Number: DE-SANOFI-AVENTIS-2013SA087458

PATIENT
  Age: 91 Year
  Sex: Female
  Weight: 64 kg

DRUGS (5)
  1. MULTAQ [Suspect]
     Indication: ATRIAL FIBRILLATION
     Route: 048
     Dates: start: 20120209, end: 20120712
  2. RAMIPRIL [Concomitant]
     Indication: HYPERTENSION
     Route: 048
     Dates: start: 1997
  3. METOPROLOL [Concomitant]
     Indication: HYPERTENSION
     Dosage: DOSAGE: HALF TABLET OF 47.5 MG DAILY
     Route: 048
     Dates: start: 2010
  4. TORASEMIDE [Concomitant]
     Indication: HYPERTENSION
     Dosage: HALF DOSAGE FORM DAILY
     Route: 048
     Dates: start: 201206
  5. PHENPROCOUMON [Concomitant]
     Indication: ATRIAL FIBRILLATION
     Dosage: DOSAGE: ACCORDING TO PLAN
     Route: 048
     Dates: start: 2009

REACTIONS (3)
  - Renal function test abnormal [Recovered/Resolved]
  - Blood creatinine increased [Recovered/Resolved]
  - Glomerular filtration rate decreased [Recovered/Resolved]
